FAERS Safety Report 8247413-8 (Version None)
Quarter: 2012Q1

REPORT INFORMATION
  Report Type: 
  Country: None (occurrence: None)
  Receive Date: 20120330
  Receipt Date: 20120323
  Transmission Date: 20120608
  Serious: Yes (Other)
  Sender: FDA-Public Use
  Company Number: US-ABBOTT-12P-163-0918649-00

PATIENT
  Sex: Female

DRUGS (2)
  1. UNKNOWN INJECTIONS [Concomitant]
     Indication: MACULAR DEGENERATION
     Route: 047
     Dates: start: 20110101
  2. SYNTHROID [Suspect]
     Indication: HYPOTHYROIDISM

REACTIONS (1)
  - MACULAR DEGENERATION [None]
